FAERS Safety Report 17989187 (Version 2)
Quarter: 2020Q3

REPORT INFORMATION
  Report Type: Spontaneous
  Country: US (occurrence: US)
  Receive Date: 20200707
  Receipt Date: 20200729
  Transmission Date: 20201103
  Serious: No
  Sender: FDA-Public Use
  Company Number: US-TEVA-2020-US-1796619

PATIENT
  Age: 65 Year
  Sex: Female
  Weight: 49.9 kg

DRUGS (6)
  1. ESCITALOPRAM [Concomitant]
     Active Substance: ESCITALOPRAM OXALATE
     Dosage: 30 MILLIGRAM DAILY;
  2. VITAMINE C [Concomitant]
     Active Substance: ASCORBIC ACID
  3. ANASTROZOLE. [Suspect]
     Active Substance: ANASTROZOLE
     Route: 065
     Dates: start: 20200327, end: 20200626
  4. MULTIVITAMINE [Concomitant]
  5. CITRACOL D [Concomitant]
  6. FISH OIL [Concomitant]
     Active Substance: FISH OIL

REACTIONS (6)
  - Arthropathy [Unknown]
  - Fatigue [Not Recovered/Not Resolved]
  - Taste disorder [Not Recovered/Not Resolved]
  - Myalgia [Not Recovered/Not Resolved]
  - Hot flush [Not Recovered/Not Resolved]
  - Arthralgia [Not Recovered/Not Resolved]

NARRATIVE: CASE EVENT DATE: 2020
